FAERS Safety Report 9237021 (Version 1)
Quarter: 2013Q2

REPORT INFORMATION
  Report Type: Spontaneous
  Country: US (occurrence: US)
  Receive Date: 20130417
  Receipt Date: 20130417
  Transmission Date: 20140414
  Serious: Yes (Other)
  Sender: FDA-Public Use
  Company Number: US-BAUSCH-BL-2013-002125

PATIENT
  Age: 83 Year
  Sex: Male

DRUGS (4)
  1. BROMDAY 0.09% [Suspect]
     Indication: PROPHYLAXIS
     Dosage: ONE DROP INTO RIGHT EYE DAILY
     Route: 047
     Dates: start: 20130304, end: 20130403
  2. BROMDAY 0.09% [Suspect]
     Indication: KERATITIS
  3. DIFLUPREDNATE [Concomitant]
     Indication: PRODUCT USED FOR UNKNOWN INDICATION
  4. TRIMETHOPRIM/POLYMYXIN B SULFATE [Concomitant]
     Indication: PRODUCT USED FOR UNKNOWN INDICATION

REACTIONS (1)
  - Ulcerative keratitis [Recovering/Resolving]
